FAERS Safety Report 9240043 (Version 1)
Quarter: 2013Q2

REPORT INFORMATION
  Report Type: Spontaneous
  Country: CA (occurrence: CA)
  Receive Date: 20130418
  Receipt Date: 20130418
  Transmission Date: 20140414
  Serious: Yes (Other)
  Sender: FDA-Public Use
  Company Number: CA-TEVA-399243USA

PATIENT
  Age: 78 Year
  Sex: Female

DRUGS (15)
  1. AMLODIPINE [Suspect]
     Dosage: 5 MILLIGRAM DAILY;
     Route: 048
  2. AMLODIPINE [Suspect]
     Dosage: 2.5 MILLIGRAM DAILY;
     Route: 048
  3. ASA [Concomitant]
  4. ATIVAN [Concomitant]
  5. CODEINE [Concomitant]
  6. ELTROXIN [Concomitant]
  7. ESTRING [Concomitant]
     Dosage: RING (SLOW-RELEASE)
  8. IMOVANE [Concomitant]
  9. IRON [Concomitant]
  10. NORVASC [Concomitant]
  11. PANTOLOC [Concomitant]
  12. SIMVASTATIN [Concomitant]
  13. SYMBICORT [Concomitant]
     Dosage: 200 TURBUHALER
  14. VITALUX-S [Concomitant]
  15. VITAMIN D [Concomitant]

REACTIONS (2)
  - Epigastric discomfort [Recovered/Resolved]
  - Gastric ulcer [Recovered/Resolved]
